FAERS Safety Report 25412387 (Version 1)
Quarter: 2025Q2

REPORT INFORMATION
  Report Type: Spontaneous
  Country: ES (occurrence: ES)
  Receive Date: 20250609
  Receipt Date: 20250609
  Transmission Date: 20250716
  Serious: Yes (Other)
  Sender: AUROBINDO
  Company Number: ES-AUROBINDO-AUR-APL-2025-029007

PATIENT
  Age: 48 Year
  Sex: Male

DRUGS (2)
  1. DORZOLAMIDE HYDROCHLORIDE AND TIMOLOL MALEATE [Suspect]
     Active Substance: DORZOLAMIDE HYDROCHLORIDE\TIMOLOL MALEATE
     Indication: Glaucoma
     Dosage: UNK, TWO TIMES A DAY
     Route: 065
  2. BIMATOPROST [Suspect]
     Active Substance: BIMATOPROST
     Indication: Glaucoma
     Dosage: UNK, ONCE A DAY
     Route: 065

REACTIONS (1)
  - Disease progression [Unknown]
